FAERS Safety Report 4675153-0 (Version None)
Quarter: 2005Q2

REPORT INFORMATION
  Report Type: 
  Country: None (occurrence: None)
  Receive Date: 20050526
  Receipt Date: 20050516
  Transmission Date: 20051028
  Serious: Yes (Other)
  Sender: FDA-Public Use
  Company Number: 2005031290

PATIENT
  Age: 76 Year
  Sex: Female
  Weight: 95.2554 kg

DRUGS (10)
  1. LIPITOR [Suspect]
     Indication: BLOOD CHOLESTEROL
     Dosage: 10 MG (10 MG, 1 IN 1 D), ORAL
     Route: 048
     Dates: end: 20050301
  2. NEURONTIN [Suspect]
     Indication: NEUROPATHY
     Dosage: ORAL
     Route: 048
     Dates: start: 20040101, end: 20040101
  3. PROZAC [Suspect]
     Indication: DEPRESSION
     Dosage: ORAL
     Route: 048
  4. AVAPRO [Concomitant]
  5. DIGITEX (DIGOXIN) [Concomitant]
  6. COUMADIN [Concomitant]
  7. LEXAPRO [Concomitant]
  8. TRILEPTAL [Concomitant]
  9. POTASSIUM CHLORIDE [Concomitant]
  10. DYAZIDE [Concomitant]

REACTIONS (8)
  - DRUG INEFFECTIVE [None]
  - FEELING DRUNK [None]
  - FEELING HOT AND COLD [None]
  - INSOMNIA [None]
  - NEUROPATHY PERIPHERAL [None]
  - OSTEOARTHRITIS [None]
  - SPINAL FRACTURE [None]
  - VISION BLURRED [None]
